FAERS Safety Report 10590052 (Version 1)
Quarter: 2014Q4

REPORT INFORMATION
  Report Type: Spontaneous
  Country: US (occurrence: None)
  Receive Date: 20141117
  Receipt Date: 20141117
  Transmission Date: 20150529
  Serious: Yes (Other)
  Sender: FDA-Public Use
  Company Number: None

PATIENT
  Age: 29 Year
  Sex: Female

DRUGS (1)
  1. DULOXETINE 90MG GENERIC [Suspect]
     Active Substance: DULOXETINE
     Indication: DEPRESSION
     Route: 048
     Dates: start: 20140301, end: 20140505

REACTIONS (5)
  - Dizziness [None]
  - Hypertension [None]
  - Tachycardia [None]
  - Product substitution issue [None]
  - Panic attack [None]

NARRATIVE: CASE EVENT DATE: 20140505
